FAERS Safety Report 5927265-9 (Version None)
Quarter: 2008Q4

REPORT INFORMATION
  Report Type: 
  Country: None (occurrence: None)
  Receive Date: 20081022
  Receipt Date: 20081014
  Transmission Date: 20090506
  Serious: Yes (Death, Hospitalization)
  Sender: FDA-Public Use
  Company Number: US-MERCK-0809USA01897

PATIENT
  Age: 68 Year
  Sex: Male

DRUGS (9)
  1. ZOLINZA [Suspect]
     Indication: T-CELL LYMPHOMA
     Route: 048
     Dates: start: 20071001
  2. ZOLINZA [Suspect]
     Route: 048
     Dates: start: 20071001
  3. ZOLINZA [Suspect]
     Route: 048
     Dates: start: 20080101
  4. DOXIL [Concomitant]
     Indication: T-CELL LYMPHOMA
     Route: 041
     Dates: start: 20080123
  5. DOXIL [Concomitant]
     Route: 041
     Dates: start: 20080220
  6. DOXIL [Concomitant]
     Route: 041
     Dates: start: 20080319
  7. DOXIL [Concomitant]
     Route: 041
     Dates: start: 20080409
  8. TARGRETIN [Concomitant]
     Indication: T-CELL LYMPHOMA
     Route: 048
     Dates: start: 20071001
  9. TARGRETIN [Concomitant]
     Route: 048
     Dates: start: 20080101

REACTIONS (4)
  - ADVERSE DRUG REACTION [None]
  - ANAEMIA [None]
  - TUMOUR NECROSIS [None]
  - WHITE BLOOD CELL COUNT DECREASED [None]
